FAERS Safety Report 23841628 (Version 1)
Quarter: 2024Q2

REPORT INFORMATION
  Report Type: Spontaneous
  Country: US (occurrence: None)
  Receive Date: 20240509
  Receipt Date: 20240509
  Transmission Date: 20240716
  Serious: Yes (Hospitalization)
  Sender: FDA-Public Use
  Company Number: None

PATIENT
  Age: 46 Year
  Sex: Male
  Weight: 126 kg

DRUGS (1)
  1. HYDROCHLOROTHIAZIDE\LISINOPRIL [Suspect]
     Active Substance: HYDROCHLOROTHIAZIDE\LISINOPRIL
     Indication: Blood sodium decreased
     Dosage: FREQUENCY : DAILY;?
     Route: 048
     Dates: start: 20210507, end: 20240406

REACTIONS (4)
  - Fatigue [None]
  - Confusional state [None]
  - Cognitive disorder [None]
  - Hyponatraemia [None]

NARRATIVE: CASE EVENT DATE: 20240406
